FAERS Safety Report 7596672-3 (Version None)
Quarter: 2011Q3

REPORT INFORMATION
  Report Type: 
  Country: None (occurrence: None)
  Receive Date: 20110708
  Receipt Date: 20110627
  Transmission Date: 20111222
  Serious: Yes (Hospitalization, Other)
  Sender: FDA-Public Use
  Company Number: US-ELI_LILLY_AND_COMPANY-US201104006687

PATIENT
  Sex: Female
  Weight: 44.898 kg

DRUGS (18)
  1. AMOXICILLIN [Concomitant]
     Indication: INFECTION
     Dosage: 500 MG, TID
  2. METHOTREXATE SODIUM [Concomitant]
     Dosage: 10 MG, WEEKLY (1/W)
  3. VITAMIN D [Concomitant]
  4. LOPRESSOR [Concomitant]
     Dosage: 25 MG, QD
  5. NEXIUM [Concomitant]
     Dosage: 40 MG, QD
  6. LIPITOR [Concomitant]
     Dosage: 10 MG, QD
  7. SYNTHROID [Concomitant]
     Dosage: 75 UG, QD
  8. AMITRIPTYLINE HCL [Concomitant]
     Dosage: 25 MG, QD
  9. CELEBREX [Concomitant]
     Dosage: 200 MG, QD
  10. RETIN-A [Concomitant]
  11. CALCIUM CARBONATE [Concomitant]
  12. FLUCONAZOLE [Concomitant]
     Indication: PHARYNGEAL ABSCESS
  13. FORTEO [Suspect]
     Indication: OSTEOPOROSIS
     Dosage: UNK, UNKNOWN
  14. CENTRUM SILVER [Concomitant]
  15. OPTIVE [Concomitant]
  16. CALTRATE PLUS [Concomitant]
     Dosage: 1500 MG, QD
  17. FOLIC ACID [Concomitant]
     Dosage: 800 UG, 2/W
  18. VITAMIN D [Concomitant]
     Dosage: 1000 U, QD

REACTIONS (2)
  - HEAD INJURY [None]
  - SYNCOPE [None]
